FAERS Safety Report 5406574-6 (Version None)
Quarter: 2007Q3

REPORT INFORMATION
  Report Type: 
  Country: None (occurrence: None)
  Receive Date: 20070806
  Receipt Date: 20070725
  Transmission Date: 20080115
  Serious: Yes (Hospitalization)
  Sender: FDA-Public Use
  Company Number: AU-PFIZER INC-2007051563

PATIENT
  Sex: Female
  Weight: 63 kg

DRUGS (3)
  1. PHARMORUBICIN [Suspect]
     Indication: BREAST CANCER
     Route: 042
     Dates: start: 20070529, end: 20070619
  2. FLUOROURACIL [Concomitant]
     Indication: BREAST CANCER
     Dosage: DAILY DOSE:820MG
     Route: 042
     Dates: start: 20070529, end: 20070619
  3. CYCLOPHOSPHAMIDE [Concomitant]
     Indication: BREAST CANCER
     Dosage: DAILY DOSE:820MG
     Route: 042
     Dates: start: 20070529, end: 20070619

REACTIONS (8)
  - ABDOMINAL PAIN [None]
  - ANAPHYLACTIC REACTION [None]
  - CHEST PAIN [None]
  - CHILLS [None]
  - DYSPNOEA [None]
  - HYPERHIDROSIS [None]
  - MALAISE [None]
  - VISION BLURRED [None]
